FAERS Safety Report 11091721 (Version 1)
Quarter: 2015Q2

REPORT INFORMATION
  Report Type: Spontaneous
  Country: US (occurrence: US)
  Receive Date: 20150505
  Receipt Date: 20150505
  Transmission Date: 20150821
  Serious: No
  Sender: FDA-Public Use
  Company Number: US-GLAXOSMITHKLINE-US2015057038

PATIENT
  Sex: Female

DRUGS (2)
  1. FLONASE [Suspect]
     Active Substance: FLUTICASONE PROPIONATE
     Indication: ASTHMA
     Route: 045
     Dates: start: 1997
  2. ALBUTEROL INHALER [Concomitant]
     Active Substance: ALBUTEROL

REACTIONS (2)
  - Bone disorder [Not Recovered/Not Resolved]
  - Cardiovascular disorder [Not Recovered/Not Resolved]
